FAERS Safety Report 11661064 (Version 5)
Quarter: 2016Q2

REPORT INFORMATION
  Report Type: Spontaneous
  Country: CA (occurrence: CA)
  Receive Date: 20151026
  Receipt Date: 20160406
  Transmission Date: 20160815
  Serious: Yes (Hospitalization, Other)
  Sender: FDA-Public Use
  Company Number: CA-PFIZER INC-2015333969

PATIENT
  Age: 67 Year
  Sex: Female

DRUGS (3)
  1. XELJANZ [Suspect]
     Active Substance: TOFACITINIB CITRATE
     Indication: RHEUMATOID ARTHRITIS
     Dosage: 5 MG, 2X/DAY
     Route: 048
     Dates: start: 20150918
  2. XELJANZ [Suspect]
     Active Substance: TOFACITINIB CITRATE
     Dosage: 5 MG, 2X/DAY
     Route: 048
     Dates: start: 20160110, end: 201603
  3. XELJANZ [Suspect]
     Active Substance: TOFACITINIB CITRATE
     Dosage: 5 MG, 2X/DAY
     Route: 048
     Dates: start: 20160328

REACTIONS (10)
  - Headache [Recovered/Resolved]
  - Rheumatoid arthritis [Recovering/Resolving]
  - Condition aggravated [Recovering/Resolving]
  - Nausea [Recovered/Resolved]
  - Oxygen saturation decreased [Not Recovered/Not Resolved]
  - Influenza [Recovered/Resolved]
  - Dyspepsia [Not Recovered/Not Resolved]
  - Pneumonia [Unknown]
  - Lower respiratory tract infection [Unknown]
  - Psoriatic arthropathy [Unknown]

NARRATIVE: CASE EVENT DATE: 2015
